FAERS Safety Report 7643952-9 (Version None)
Quarter: 2011Q3

REPORT INFORMATION
  Report Type: 
  Country: None (occurrence: None)
  Receive Date: 20110729
  Receipt Date: 20110726
  Transmission Date: 20111222
  Serious: Yes (Death, Hospitalization)
  Sender: FDA-Public Use
  Company Number: TR-SANOFI-AVENTIS-2011SA013997

PATIENT
  Age: 59 Year
  Sex: Male
  Weight: 88 kg

DRUGS (9)
  1. PREDNISOLONE [Suspect]
     Indication: PROSTATE CANCER
     Dates: start: 20110217, end: 20110226
  2. DEXAMETHASONE [Concomitant]
  3. ONDANSETRON [Concomitant]
  4. RAMIPRIL [Concomitant]
  5. KETOPROFEN [Concomitant]
  6. BELOC [Concomitant]
  7. NEUPOGEN [Concomitant]
     Indication: PROPHYLAXIS
  8. ATROPINE/DIPHENOXYLATE [Concomitant]
  9. CABAZITAXEL [Suspect]
     Indication: PROSTATE CANCER
     Route: 042
     Dates: start: 20110217, end: 20110217

REACTIONS (3)
  - MULTI-ORGAN FAILURE [None]
  - NEUTROPENIC SEPSIS [None]
  - GASTROINTESTINAL HAEMORRHAGE [None]
